FAERS Safety Report 8195135-4 (Version None)
Quarter: 2012Q1

REPORT INFORMATION
  Report Type: 
  Country: None (occurrence: None)
  Receive Date: 20120308
  Receipt Date: 20111026
  Transmission Date: 20120608
  Serious: No
  Sender: FDA-Public Use
  Company Number: US-GLAXOSMITHKLINE-A0950786A

PATIENT
  Age: 57 Year
  Sex: Female

DRUGS (2)
  1. NICORETTE [Suspect]
     Indication: EX-TOBACCO USER
     Route: 002
  2. NICORETTE [Concomitant]

REACTIONS (2)
  - BURNING SENSATION [None]
  - GINGIVAL SWELLING [None]
